FAERS Safety Report 5855942-7 (Version None)
Quarter: 2008Q3

REPORT INFORMATION
  Report Type: 
  Country: None (occurrence: None)
  Receive Date: 20080825
  Receipt Date: 20080821
  Transmission Date: 20090109
  Serious: Yes (Hospitalization)
  Sender: FDA-Public Use
  Company Number: PHHY2008FR18877

PATIENT
  Age: 32 Year
  Sex: Female

DRUGS (2)
  1. METHERGINE [Suspect]
     Indication: ABORTION INCOMPLETE
     Dosage: 10 DRP, TID
  2. CYTOTEC [Concomitant]

REACTIONS (1)
  - MYOCLONUS [None]
